FAERS Safety Report 13515344 (Version 2)
Quarter: 2017Q2

REPORT INFORMATION
  Report Type: Spontaneous
  Country: FR (occurrence: FR)
  Receive Date: 20170504
  Receipt Date: 20170510
  Transmission Date: 20170830
  Serious: Yes (Other)
  Sender: FDA-Public Use
  Company Number: FR-PFIZER INC-2017186863

PATIENT
  Age: 44 Year
  Sex: Female

DRUGS (2)
  1. EBASTINE [Concomitant]
     Active Substance: EBASTINE
  2. NOVATREX NOS [Suspect]
     Active Substance: AZITHROMYCIN OR METHOTREXATE SODIUM
     Indication: ARTHRALGIA
     Dosage: 2.5 MG, 2X/CYCLE (ON FRIDAY AND SATURDAY)
     Route: 048
     Dates: start: 20170324, end: 20170401

REACTIONS (11)
  - Ageusia [Recovered/Resolved]
  - Oropharyngeal pain [Recovered/Resolved]
  - Facial pain [Unknown]
  - Paralysis [Recovering/Resolving]
  - Hypertransaminasaemia [Not Recovered/Not Resolved]
  - Malaise [Recovered/Resolved]
  - Chills [Recovered/Resolved]
  - Muscular weakness [Recovering/Resolving]
  - Pain in jaw [Unknown]
  - Musculoskeletal stiffness [Unknown]
  - Asthenia [Unknown]

NARRATIVE: CASE EVENT DATE: 20170326
